FAERS Safety Report 19029306 (Version 3)
Quarter: 2021Q2

REPORT INFORMATION
  Report Type: Spontaneous
  Country: AU (occurrence: AU)
  Receive Date: 20210318
  Receipt Date: 20210405
  Transmission Date: 20210717
  Serious: Yes (Hospitalization, Other)
  Sender: FDA-Public Use
  Company Number: AU-BAYER-2021-104916

PATIENT
  Age: 34 Year
  Sex: Female

DRUGS (2)
  1. NAPROGESIC [Suspect]
     Active Substance: NAPROXEN SODIUM
     Indication: ANAPHYLACTIC REACTION
     Dates: start: 20010301, end: 20140131
  2. NAPROGESIC [Suspect]
     Active Substance: NAPROXEN SODIUM
     Indication: DYSMENORRHOEA

REACTIONS (5)
  - Loss of consciousness [Recovered/Resolved]
  - Hypersensitivity [None]
  - Drug hypersensitivity [None]
  - Hypersensitivity [None]
  - Loss of consciousness [Recovered/Resolved]

NARRATIVE: CASE EVENT DATE: 201310
